FAERS Safety Report 8099626-6 (Version None)
Quarter: 2012Q1

REPORT INFORMATION
  Report Type: 
  Country: None (occurrence: None)
  Receive Date: 20120131
  Receipt Date: 20120130
  Transmission Date: 20120608
  Serious: Yes (Life-Threatening)
  Sender: FDA-Public Use
  Company Number: IT-PFIZER INC-2012006660

PATIENT
  Age: 84 Year
  Sex: Female

DRUGS (10)
  1. PANTOPRAZOLE SODIUM [Concomitant]
     Dosage: 1 DF, UNK
     Route: 042
  2. LANOXIN [Concomitant]
     Dosage: 0.25 DF, UNK
     Route: 042
  3. LEVOFLOXACIN [Concomitant]
     Dosage: 5 IU, UNK
     Route: 042
  4. PROSTIGMINA [Concomitant]
     Dosage: 0.5 MG/ML,, UNK
     Route: 030
  5. DILTIAZEM [Concomitant]
     Dosage: 180 MG, UNK
  6. LASIX [Concomitant]
     Dosage: 2 DF, UNK
     Route: 042
  7. ENOXAPARIN SODIUM [Concomitant]
     Dosage: 2000 IU, UNK
     Route: 058
  8. PERIDON [Concomitant]
     Dosage: 30 MG, UNK
     Route: 048
  9. KANRENOL [Concomitant]
     Dosage: 200 MG, UNK
     Route: 042
  10. ARMODAFINIL [Suspect]
     Indication: CANDIDIASIS
     Dosage: 400 MG, 1X/DAY
     Route: 042
     Dates: start: 20111217, end: 20111226

REACTIONS (2)
  - PANCYTOPENIA [None]
  - BONE MARROW FAILURE [None]
